FAERS Safety Report 6866313-9 (Version None)
Quarter: 2010Q3

REPORT INFORMATION
  Report Type: 
  Country: None (occurrence: None)
  Receive Date: 20100722
  Receipt Date: 20100719
  Transmission Date: 20110219
  Serious: Yes (Other)
  Sender: FDA-Public Use
  Company Number: GB-SP-2010-03915

PATIENT
  Sex: Male

DRUGS (4)
  1. IMMUCYST [Suspect]
     Indication: PRODUCT USED FOR UNKNOWN INDICATION
     Route: 065
     Dates: start: 20091204, end: 20100108
  2. IMMUCYST [Suspect]
     Route: 065
  3. IMMUCYST [Suspect]
     Route: 065
  4. IMMUCYST [Suspect]
     Route: 065

REACTIONS (2)
  - EPIDIDYMITIS [None]
  - TUBERCULOSIS [None]
